FAERS Safety Report 20094414 (Version 2)
Quarter: 2021Q4

REPORT INFORMATION
  Report Type: Spontaneous
  Country: CA (occurrence: CA)
  Receive Date: 20211122
  Receipt Date: 20211220
  Transmission Date: 20220303
  Serious: Yes (Other)
  Sender: FDA-Public Use
  Company Number: CA-TEVA-2021-CA-1978759

PATIENT
  Age: 65 Year
  Sex: Male
  Weight: 88 kg

DRUGS (7)
  1. DOXYCYCLINE HYCLATE [Suspect]
     Active Substance: DOXYCYCLINE HYCLATE
     Indication: Prophylaxis
     Dosage: 100 MILLIGRAM DAILY;
     Route: 048
     Dates: start: 20211026
  2. DOXYCYCLINE HYCLATE [Suspect]
     Active Substance: DOXYCYCLINE HYCLATE
     Dates: start: 20210722
  3. RAMIPRIL [Concomitant]
     Active Substance: RAMIPRIL
  4. AMLODIPINE [Concomitant]
     Active Substance: AMLODIPINE BESYLATE
  5. CLOPIDOGREL [Concomitant]
     Active Substance: CLOPIDOGREL BISULFATE
  6. PANTOPRAZOLE [Concomitant]
     Active Substance: PANTOPRAZOLE
  7. MAGNESIUM [Concomitant]
     Active Substance: MAGNESIUM

REACTIONS (8)
  - Anaphylactic reaction [Unknown]
  - Generalised bullous fixed drug eruption [Recovering/Resolving]
  - Swollen tongue [Unknown]
  - Candida infection [Recovering/Resolving]
  - Urticaria [Unknown]
  - Blister [Recovering/Resolving]
  - Lip swelling [Unknown]
  - Chapped lips [Unknown]

NARRATIVE: CASE EVENT DATE: 20210101
